FAERS Safety Report 9958571 (Version 1)
Quarter: 2014Q1

REPORT INFORMATION
  Report Type: Report from Study
  Country: US (occurrence: US)
  Receive Date: 20140305
  Receipt Date: 20140305
  Transmission Date: 20141002
  Serious: Yes (Other)
  Sender: FDA-Public Use
  Company Number: US-ROCHE-1356860

PATIENT
  Age: 49 Year
  Sex: Female
  Weight: 73.55 kg

DRUGS (5)
  1. ACTEMRA [Suspect]
     Indication: RHEUMATOID ARTHRITIS
     Route: 042
     Dates: start: 201105
  2. ACTEMRA [Suspect]
     Dosage: FOUR MOST RECENT DOSES RECEIVED ON NOV/2013, DEC/2013, JAN/2014, FEB/2014 AT A DOSE OF 8 MG/KG
     Route: 042
  3. METHOTREXATE [Concomitant]
     Indication: RHEUMATOID ARTHRITIS
     Dosage: 6 TABLETS
     Route: 048
  4. PREDNISONE [Concomitant]
     Indication: RHEUMATOID ARTHRITIS
     Route: 048
  5. FOLIC ACID [Concomitant]
     Route: 065

REACTIONS (3)
  - Blood cholesterol increased [Unknown]
  - Arthralgia [Recovering/Resolving]
  - Blood potassium decreased [Recovering/Resolving]
